FAERS Safety Report 19944421 (Version 1)
Quarter: 2021Q4

REPORT INFORMATION
  Report Type: 
  Country: US (occurrence: US)
  Receive Date: 20211011
  Receipt Date: 20211011
  Transmission Date: 20220304
  Serious: No
  Sender: FDA-Public Use
  Company Number: US-C B FLEET CO INC-202008-US-003138

PATIENT
  Sex: Female

DRUGS (1)
  1. MONISTAT 3 COMBINATION PACK [Suspect]
     Active Substance: MICONAZOLE NITRATE
     Indication: Fungal infection
     Dosage: USED TWO DAYS, DID NOT USE THIRD TREATMENT AFTER COMPLETING MONISTAT TREATMENT LESS THAN ONE WEEK AG
     Route: 067

REACTIONS (3)
  - Vulvovaginal pain [Recovering/Resolving]
  - Genital paraesthesia [Recovering/Resolving]
  - Off label use [None]
